FAERS Safety Report 5166480-1 (Version None)
Quarter: 2006Q4

REPORT INFORMATION
  Report Type: 
  Country: None (occurrence: None)
  Receive Date: 20061207
  Receipt Date: 20061124
  Transmission Date: 20070319
  Serious: Yes (Hospitalization)
  Sender: FDA-Public Use
  Company Number: PHBS2006CH18250

PATIENT
  Sex: Female

DRUGS (5)
  1. VOLTAREN [Suspect]
     Indication: PAIN
     Dosage: 1 AMP/DAY
     Route: 030
     Dates: start: 20061007, end: 20061008
  2. ASPIRIN [Suspect]
     Dosage: 100 MG/DAY
     Dates: end: 20061008
  3. FLUCTINE [Suspect]
     Dosage: 20 MG/DAY
     Dates: end: 20061008
  4. ZANIDIP [Concomitant]
     Dosage: 1 DF/DAY
  5. VOLTAREN [Suspect]
     Indication: BACK PAIN
     Dates: end: 20061006

REACTIONS (11)
  - ABDOMINAL PAIN [None]
  - ANAEMIA [None]
  - BLOOD PRESSURE INCREASED [None]
  - GASTRIC ULCER [None]
  - GASTROINTESTINAL HAEMORRHAGE [None]
  - HAEMATEMESIS [None]
  - HAEMOGLOBIN DECREASED [None]
  - HEART RATE INCREASED [None]
  - HIATUS HERNIA [None]
  - LOSS OF CONSCIOUSNESS [None]
  - PARESIS ANAL SPHINCTER [None]
